FAERS Safety Report 4295393-2 (Version None)
Quarter: 2004Q1

REPORT INFORMATION
  Report Type: 
  Country: None (occurrence: None)
  Receive Date: 20040216
  Receipt Date: 20030714
  Transmission Date: 20041129
  Serious: No
  Sender: FDA-Public Use
  Company Number: US-GLAXOSMITHKLINE-A0417161A

PATIENT
  Sex: Male

DRUGS (6)
  1. LAMICTAL [Suspect]
     Indication: EPILEPSY
     Dosage: 100MG PER DAY
     Route: 048
     Dates: start: 20030101
  2. DETROL [Concomitant]
  3. FOSAMAX [Concomitant]
  4. FLONASE [Concomitant]
     Route: 045
  5. DDAVP [Concomitant]
  6. VALPROIC ACID [Concomitant]
     Dosage: 1000MG PER DAY

REACTIONS (4)
  - MEMORY IMPAIRMENT [None]
  - MENTAL IMPAIRMENT [None]
  - MUSCULAR WEAKNESS [None]
  - SPEECH DISORDER [None]
